FAERS Safety Report 11752768 (Version 1)
Quarter: 2015Q4

REPORT INFORMATION
  Report Type: Spontaneous
  Country: CZ (occurrence: CZ)
  Receive Date: 20151119
  Receipt Date: 20151119
  Transmission Date: 20160304
  Serious: Yes (Life-Threatening, Hospitalization)
  Sender: FDA-Public Use
  Company Number: CZ-ACCORD-035433

PATIENT
  Age: 59 Year
  Sex: Female

DRUGS (2)
  1. FLUOROURACIL. [Suspect]
     Active Substance: FLUOROURACIL
     Indication: OESOPHAGEAL SQUAMOUS CELL CARCINOMA
  2. CISPLATIN. [Concomitant]
     Active Substance: CISPLATIN

REACTIONS (5)
  - Pulmonary oedema [Recovering/Resolving]
  - Renal failure [Recovering/Resolving]
  - Hepatic failure [Recovering/Resolving]
  - Hypotension [Recovering/Resolving]
  - Diarrhoea [Recovering/Resolving]
